FAERS Safety Report 4680313-9 (Version None)
Quarter: 2005Q2

REPORT INFORMATION
  Report Type: 
  Country: None (occurrence: None)
  Receive Date: 20050602
  Receipt Date: 20031106
  Transmission Date: 20051028
  Serious: Yes (Death, Hospitalization)
  Sender: FDA-Public Use
  Company Number: NL-ABBOTT-03P-114-0239963-00

PATIENT
  Sex: Female
  Weight: 55 kg

DRUGS (20)
  1. HUMIRA [Suspect]
     Indication: RHEUMATOID ARTHRITIS
     Route: 058
     Dates: start: 20030207, end: 20030820
  2. METHOTREXATE [Concomitant]
     Indication: RHEUMATOID ARTHRITIS
     Route: 048
     Dates: start: 20020801
  3. METHOTREXATE [Concomitant]
     Route: 048
     Dates: start: 20010115, end: 20020801
  4. HYDROCHLOROTHIAZIDE [Concomitant]
     Indication: HYPERTENSION
     Route: 048
     Dates: start: 20020101, end: 20030217
  5. HYDROCHLOROTHIAZIDE [Concomitant]
     Route: 048
     Dates: end: 20030217
  6. PREDNISONE TAB [Concomitant]
     Indication: RHEUMATOID ARTHRITIS
     Route: 048
     Dates: start: 20030508
  7. PREDNISONE TAB [Concomitant]
     Route: 048
     Dates: start: 20020801, end: 20030507
  8. BUMETANIDE [Concomitant]
     Route: 048
  9. CARDURA [Concomitant]
     Route: 048
  10. PERINDOPRIL [Concomitant]
     Route: 048
  11. ACENOCOUMAROL [Concomitant]
     Indication: THROMBOSIS PROPHYLAXIS
     Route: 048
     Dates: start: 20020101
  12. PARACETAMOL [Concomitant]
     Indication: RHEUMATOID ARTHRITIS
     Route: 048
     Dates: end: 20030501
  13. AZATHIOPRINE [Concomitant]
     Indication: RHEUMATOID ARTHRITIS
     Route: 048
     Dates: start: 19910522, end: 20000401
  14. LEFLUNOMIDE [Concomitant]
     Indication: RHEUMATOID ARTHRITIS
     Route: 048
     Dates: start: 20000426, end: 20010115
  15. FOLIC ACID [Concomitant]
     Indication: FOLATE DEFICIENCY
     Route: 048
     Dates: start: 20020101
  16. PANTOPRAZOLE [Concomitant]
     Indication: PROPHYLAXIS AGAINST GASTROINTESTINAL ULCER
     Route: 048
  17. HYDROXYCHLOROQUINE SULFATE [Concomitant]
     Indication: RHEUMATOID ARTHRITIS
     Route: 048
     Dates: start: 19890701, end: 19891002
  18. SULFASALAZINE [Concomitant]
     Indication: RHEUMATOID ARTHRITIS
     Route: 048
     Dates: start: 19891003, end: 19910113
  19. AUROTHIOGLUCOSE [Concomitant]
     Indication: RHEUMATOID ARTHRITIS
     Route: 048
     Dates: start: 19910101, end: 19910523
  20. SOTALOL HCL [Concomitant]
     Indication: ARRHYTHMIA
     Route: 048
     Dates: start: 20020101

REACTIONS (9)
  - ACCIDENT [None]
  - BLOOD PRESSURE INCREASED [None]
  - DEATH [None]
  - FALL [None]
  - HAEMATOMA [None]
  - INJURY [None]
  - INTERNATIONAL NORMALISED RATIO INCREASED [None]
  - OSTEOARTHRITIS [None]
  - RENAL FAILURE [None]
